FAERS Safety Report 8891288 (Version 2)
Quarter: 2012Q4

REPORT INFORMATION
  Report Type: 
  Country: AU (occurrence: AU)
  Receive Date: 20121107
  Receipt Date: 20121109
  Transmission Date: 20130627
  Serious: Yes (Other)
  Sender: FDA-Public Use
  Company Number: AU-ALLERGAN-1215208US

PATIENT
  Age: 27 Year
  Sex: Female

DRUGS (1)
  1. BOTOX� [Suspect]
     Indication: FROWN LINES

REACTIONS (1)
  - Neoplasm malignant [Unknown]
